FAERS Safety Report 10228320 (Version 1)
Quarter: 2014Q2

REPORT INFORMATION
  Report Type: Report from Study
  Country: CA (occurrence: CA)
  Receive Date: 20140610
  Receipt Date: 20140610
  Transmission Date: 20141212
  Serious: Yes (Hospitalization, Other)
  Sender: FDA-Public Use
  Company Number: CA-ABBVIE-14P-028-1245090-00

PATIENT
  Sex: Female
  Weight: 90.8 kg

DRUGS (2)
  1. KALETRA [Suspect]
     Indication: ANTIRETROVIRAL THERAPY
     Dosage: 200MG/50 MG , 2 TABS , BID
     Route: 048
     Dates: start: 2008
  2. TRUVADA [Concomitant]
     Indication: HIV INFECTION
     Dosage: 200/300 MG
     Route: 048

REACTIONS (3)
  - Brain operation [Unknown]
  - Blindness unilateral [Recovering/Resolving]
  - Headache [Not Recovered/Not Resolved]
